FAERS Safety Report 10462959 (Version 6)
Quarter: 2019Q2

REPORT INFORMATION
  Report Type: Report from Study
  Country: ES (occurrence: ES)
  Receive Date: 20140918
  Receipt Date: 20190405
  Transmission Date: 20190711
  Serious: Yes (Hospitalization, Other)
  Sender: FDA-Public Use
  Company Number: ES-ROCHE-1463234

PATIENT
  Age: 63 Year
  Sex: Female
  Weight: 50.4 kg

DRUGS (5)
  1. MIRTAZAPINA [Concomitant]
     Active Substance: MIRTAZAPINE
     Indication: INSOMNIA
     Route: 048
     Dates: start: 201308, end: 201411
  2. BEVACIZUMAB. [Suspect]
     Active Substance: BEVACIZUMAB
     Indication: COLORECTAL CANCER METASTATIC
     Dosage: LAST DOSE PRIOR TO SAE: 25/AUG/2014
     Route: 042
     Dates: start: 20140825
  3. IRINOTECAN [Suspect]
     Active Substance: IRINOTECAN
     Indication: COLORECTAL CANCER METASTATIC
     Dosage: LAST DOSE PRIOR TO SAE: 25/AUG/2014
     Route: 042
     Dates: start: 20140825
  4. OXALIPLATIN. [Suspect]
     Active Substance: OXALIPLATIN
     Indication: COLORECTAL CANCER METASTATIC
     Dosage: LAST DOSE PRIOR TO SAE: 25/AUG/2014
     Route: 042
  5. LEUCOVORIN. [Suspect]
     Active Substance: LEUCOVORIN
     Indication: COLORECTAL CANCER METASTATIC
     Dosage: LAST DOSE PRIOR TO SAE: 25/AUG/2014
     Route: 042
     Dates: end: 20140825

REACTIONS (3)
  - Febrile neutropenia [Recovered/Resolved]
  - Sepsis [Recovered/Resolved]
  - Systemic inflammatory response syndrome [Recovered/Resolved]

NARRATIVE: CASE EVENT DATE: 20140901
